FAERS Safety Report 6942448-7 (Version None)
Quarter: 2010Q3

REPORT INFORMATION
  Report Type: 
  Country: None (occurrence: None)
  Receive Date: 20100826
  Receipt Date: 20100814
  Transmission Date: 20110219
  Serious: Yes (Hospitalization, Other)
  Sender: FDA-Public Use
  Company Number: PHHY2010DE43846

PATIENT
  Sex: Female
  Weight: 65 kg

DRUGS (3)
  1. MYCOPHENOLIC ACID [Suspect]
     Indication: RENAL TRANSPLANT
     Dosage: 360 MG/DAY
     Route: 048
  2. SANDIMMUNE [Concomitant]
     Indication: IMMUNOSUPPRESSION
     Dosage: 90 MG-0-60 MG
     Route: 048
  3. SANDIMMUNE [Concomitant]
     Dosage: 60 MG
     Route: 048

REACTIONS (6)
  - AMYLOIDOSIS [None]
  - ESCHERICHIA INFECTION [None]
  - PLEURAL EFFUSION [None]
  - RENAL FAILURE ACUTE [None]
  - URINARY TRACT INFECTION [None]
  - UROSEPSIS [None]
